FAERS Safety Report 6163644-5 (Version None)
Quarter: 2009Q2

REPORT INFORMATION
  Report Type: 
  Country: None (occurrence: None)
  Receive Date: 20090422
  Receipt Date: 20090416
  Transmission Date: 20091009
  Serious: Yes (Hospitalization, Other)
  Sender: FDA-Public Use
  Company Number: US-PFIZER INC-2004220558US

PATIENT
  Sex: Female
  Weight: 78 kg

DRUGS (25)
  1. PROVERA [Suspect]
     Indication: HORMONE REPLACEMENT THERAPY
     Dosage: 10 MG, UNK
     Route: 048
     Dates: start: 19820101, end: 19970115
  2. PROVERA [Suspect]
     Indication: MENOPAUSAL SYMPTOMS
  3. PROVELLA-14 [Suspect]
     Indication: HORMONE REPLACEMENT THERAPY
     Route: 065
     Dates: start: 19820101, end: 19970101
  4. KLIOGEST ^NOVO INDUSTRI^ [Suspect]
     Indication: HORMONE REPLACEMENT THERAPY
     Route: 065
     Dates: start: 20000101
  5. PREMPRO [Suspect]
     Indication: HORMONE REPLACEMENT THERAPY
     Dosage: 0.625MG / 0.25MG
     Dates: start: 19970115, end: 20000103
  6. PREMPRO [Suspect]
     Indication: MENOPAUSAL SYMPTOMS
  7. PREMARIN [Suspect]
     Indication: HORMONE REPLACEMENT THERAPY
     Dosage: 0.625 MG, UNK
     Dates: start: 19820504, end: 19970206
  8. PREMARIN [Suspect]
     Indication: MENOPAUSAL SYMPTOMS
  9. ESTRADERM [Suspect]
     Indication: HORMONE REPLACEMENT THERAPY
     Dosage: 0.05 MG, UNK
     Dates: start: 19890428, end: 19890727
  10. ESTRADERM [Suspect]
     Indication: MENOPAUSAL SYMPTOMS
  11. COMBIPATCH [Suspect]
     Indication: HORMONE REPLACEMENT THERAPY
     Dosage: UNK
     Dates: start: 20000103, end: 20000203
  12. COMBIPATCH [Suspect]
     Indication: MENOPAUSAL SYMPTOMS
  13. SIMVASTATIN [Concomitant]
     Indication: HYPERCHOLESTEROLAEMIA
     Route: 065
     Dates: start: 20010601
  14. ALENDRONATE SODIUM [Concomitant]
     Indication: OSTEOPOROSIS PROPHYLAXIS
     Dosage: DAILY
     Route: 065
     Dates: start: 20000701
  15. ALENDRONATE SODIUM [Concomitant]
     Dosage: ONCE A WEEK
     Route: 065
  16. FLUOXETINE [Concomitant]
     Indication: DEPRESSION
     Dosage: UNK
     Route: 065
     Dates: start: 19890607
  17. ATORVASTATIN CALCIUM [Concomitant]
     Indication: HYPERCHOLESTEROLAEMIA
     Route: 065
     Dates: start: 20000725, end: 20010601
  18. TRIAMTERENE AND HYDROCHLOROTHIAZIDE [Concomitant]
     Indication: ILL-DEFINED DISORDER
     Route: 065
     Dates: start: 20010507
  19. CEPHALEXIN MONOHYDRATE [Concomitant]
     Indication: ILL-DEFINED DISORDER
     Route: 065
     Dates: start: 20011120, end: 20011101
  20. LORAZEPAM [Concomitant]
     Indication: ANXIETY
     Route: 065
     Dates: start: 20020118, end: 20020101
  21. ACYCLOVIR [Concomitant]
     Indication: IMMUNOSUPPRESSION
     Route: 065
     Dates: start: 20020605, end: 20020101
  22. TRIAMTERENE AND HYDROCHLOROTHIAZIDE [Concomitant]
     Route: 065
     Dates: start: 19910625, end: 20010101
  23. MAXZIDE [Concomitant]
     Indication: OEDEMA PERIPHERAL
     Dosage: UNK
     Dates: start: 19910625, end: 20001223
  24. MULTI-VITAMINS [Concomitant]
     Indication: SUPPLEMENTATION THERAPY
     Dosage: UNK
     Dates: start: 19800101
  25. PROZAC [Concomitant]
     Indication: DEPRESSION
     Dosage: UNK
     Dates: start: 19890101, end: 20011001

REACTIONS (1)
  - BREAST CANCER FEMALE [None]
